FAERS Safety Report 18443143 (Version 14)
Quarter: 2021Q4

REPORT INFORMATION
  Report Type: Report from Study
  Country: BR (occurrence: BR)
  Receive Date: 20201029
  Receipt Date: 20211117
  Transmission Date: 20220303
  Serious: Yes (Disabling, Other)
  Sender: FDA-Public Use
  Company Number: BR-TAKEDA-BR202033116

PATIENT
  Sex: Male
  Weight: 36 kg

DRUGS (12)
  1. IDURSULFASE [Suspect]
     Active Substance: IDURSULFASE
     Indication: Mucopolysaccharidosis II
     Dosage: 6 DOSAGE FORM, 1/WEEK
     Route: 042
     Dates: start: 2010
  2. IDURSULFASE [Suspect]
     Active Substance: IDURSULFASE
     Dosage: 6 DOSAGE FORM, 2/MONTH
     Route: 042
     Dates: start: 201103
  3. IDURSULFASE [Suspect]
     Active Substance: IDURSULFASE
     Dosage: 6 DOSAGE FORM, Q2WEEKS
     Route: 042
     Dates: start: 2011
  4. IDURSULFASE [Suspect]
     Active Substance: IDURSULFASE
     Dosage: 6 DOSAGE FORM, 2/MONTH
     Route: 042
     Dates: start: 2011
  5. IDURSULFASE [Suspect]
     Active Substance: IDURSULFASE
     Dosage: 2 DOSAGE FORM, 2/MONTH
     Route: 065
  6. IDURSULFASE [Suspect]
     Active Substance: IDURSULFASE
     Dosage: UNK, 1/WEEK
     Route: 050
  7. IDURSULFASE [Suspect]
     Active Substance: IDURSULFASE
     Dosage: 18 MILLIGRAM, 2/MONTH
     Route: 042
     Dates: start: 20160125
  8. IDURSULFASE [Suspect]
     Active Substance: IDURSULFASE
     Dosage: UNK, Q2WEEKS
     Route: 042
     Dates: start: 202007
  9. IDURSULFASE [Suspect]
     Active Substance: IDURSULFASE
     Dosage: 5 DOSAGE FORM, 2/MONTH
     Route: 042
     Dates: start: 201103
  10. IDURSULFASE [Suspect]
     Active Substance: IDURSULFASE
     Dosage: 6 DOSAGE FORM, Q2WEEKS
     Route: 065
  11. HUNTERASE [Concomitant]
     Indication: Product used for unknown indication
     Dosage: UNK
     Route: 050
  12. SODIUM CHLORIDE [Concomitant]
     Active Substance: SODIUM CHLORIDE
     Indication: Nasal discomfort
     Route: 065

REACTIONS (30)
  - Deafness [Recovering/Resolving]
  - COVID-19 [Recovered/Resolved]
  - Decreased immune responsiveness [Unknown]
  - Tonsillectomy [Unknown]
  - Oropharyngeal pain [Recovered/Resolved]
  - Nasopharyngitis [Unknown]
  - Influenza [Unknown]
  - Swelling [Unknown]
  - Weight decreased [Unknown]
  - Weight increased [Unknown]
  - Pain in extremity [Not Recovered/Not Resolved]
  - Muscle spasms [Not Recovered/Not Resolved]
  - Eye swelling [Not Recovered/Not Resolved]
  - Cardiac murmur [Unknown]
  - Pain [Unknown]
  - Eye oedema [Unknown]
  - Fatigue [Unknown]
  - Tremor [Recovered/Resolved]
  - Arthralgia [Unknown]
  - Cough [Recovered/Resolved]
  - Pyrexia [Recovered/Resolved]
  - Dyspnoea [Recovered/Resolved]
  - Infusion related reaction [Unknown]
  - Product dose omission issue [Unknown]
  - Product administration error [Unknown]
  - Incorrect dose administered [Unknown]
  - Incorrect drug administration rate [Unknown]
  - Therapy interrupted [Recovered/Resolved]
  - Off label use [Unknown]
  - Product availability issue [Recovered/Resolved]

NARRATIVE: CASE EVENT DATE: 20100101
